APPROVED DRUG PRODUCT: THYROLAR-2
Active Ingredient: LIOTRIX (T4;T3)
Strength: 0.1MG;0.025MG
Dosage Form/Route: TABLET;ORAL
Application: N016807 | Product #002
Applicant: ALLERGAN SALES LLC
Approved: Approved Prior to Jan 1, 1982 | RLD: Yes | RS: No | Type: DISCN